FAERS Safety Report 8776489 (Version 1)
Quarter: 2012Q4

REPORT INFORMATION
  Report Type: Report from Study
  Country: CA (occurrence: CA)
  Receive Date: 20120910
  Receipt Date: 20120910
  Transmission Date: 20130627
  Serious: Yes (Other)
  Sender: FDA-Public Use
  Company Number: CA-JNJFOC-20120900993

PATIENT
  Age: 41 Year
  Sex: Male
  Weight: 72.58 kg

DRUGS (8)
  1. REMICADE [Suspect]
     Indication: COLITIS ULCERATIVE
     Route: 042
     Dates: start: 20120831
  2. REMICADE [Suspect]
     Indication: COLITIS ULCERATIVE
     Route: 042
     Dates: start: 20111223
  3. ACETAMINOPHEN [Concomitant]
     Indication: PREMEDICATION
     Route: 048
  4. BENADRYL [Concomitant]
     Indication: PREMEDICATION
     Route: 042
  5. CALCIUM [Concomitant]
     Route: 065
  6. VITAMIN D [Concomitant]
     Route: 065
  7. COD LIVER OIL [Concomitant]
     Route: 065
  8. CENTRUM NOS [Concomitant]
     Route: 065

REACTIONS (5)
  - Oxygen saturation abnormal [Recovered/Resolved]
  - Infusion related reaction [Recovered/Resolved]
  - Chest discomfort [Recovered/Resolved]
  - Dyspnoea [Recovered/Resolved]
  - Flushing [Recovered/Resolved]
